FAERS Safety Report 9765777 (Version 1)
Quarter: 2013Q4

REPORT INFORMATION
  Report Type: Spontaneous
  Country: US (occurrence: US)
  Receive Date: 20131217
  Receipt Date: 20131217
  Transmission Date: 20140711
  Serious: No
  Sender: FDA-Public Use
  Company Number: US-GLAXOSMITHKLINE-A1011496A

PATIENT
  Age: 78 Year
  Sex: Male
  Weight: 108.2 kg

DRUGS (19)
  1. VOTRIENT [Suspect]
     Indication: PRODUCT USED FOR UNKNOWN INDICATION
     Dosage: 400MG PER DAY
     Route: 048
  2. HUMALOG [Concomitant]
  3. ATIVAN [Concomitant]
     Route: 048
  4. CALCITROL [Concomitant]
     Route: 048
  5. ZOLPIDEM [Concomitant]
     Route: 048
  6. COUMADIN [Concomitant]
     Route: 048
  7. ZYRTEC [Concomitant]
     Route: 048
  8. DILAUDID [Concomitant]
     Route: 048
  9. LANTUS [Concomitant]
  10. BETAMETH [Concomitant]
  11. ZOFRAN [Concomitant]
     Route: 048
  12. AVODART [Concomitant]
     Route: 048
  13. FOLIC ACID [Concomitant]
     Route: 048
  14. FLOMAX [Concomitant]
     Route: 048
  15. RANITIDINE [Concomitant]
  16. LIDODERM GEL [Concomitant]
  17. CALCIUM + D [Concomitant]
  18. MAGNESIUM OXIDE [Concomitant]
     Route: 065
  19. ENTERIC ASPIRIN [Concomitant]
     Route: 048

REACTIONS (1)
  - Abdominal pain upper [Unknown]
